FAERS Safety Report 7056152-0 (Version None)
Quarter: 2010Q4

REPORT INFORMATION
  Report Type: 
  Country: None (occurrence: None)
  Receive Date: 20101021
  Receipt Date: 20101006
  Transmission Date: 20110411
  Serious: Yes (Disabling)
  Sender: FDA-Public Use
  Company Number: GB-PFIZER INC-2010127273

PATIENT
  Age: 78 Year
  Sex: Female

DRUGS (10)
  1. PREGABALIN [Suspect]
     Indication: PAIN
     Dosage: 75 MG, 2X/DAY
     Route: 048
     Dates: end: 20100803
  2. ALENDRONIC ACID [Concomitant]
     Dosage: 50 MG, 1X/DAY
  3. ACETYLSALICYLIC ACID [Concomitant]
     Indication: MYOCARDIAL ISCHAEMIA
     Dosage: 75 MG, UNK
     Route: 048
  4. CLOPIDOGREL [Concomitant]
     Indication: MYOCARDIAL ISCHAEMIA
     Dosage: 75 MG, UNK
     Route: 048
  5. GAVISCON [Concomitant]
     Dosage: UNK
     Route: 048
  6. NICORANDIL [Concomitant]
     Dosage: 10 MG, UNK
     Route: 048
  7. NIFEDIPINE [Concomitant]
     Dosage: 30 MG, 1X/DAY
  8. RANITIDINE [Concomitant]
     Dosage: 150 MG, 1X/DAY
  9. SIMVASTATIN [Concomitant]
     Dosage: 40 MG, 1X/DAY
  10. TROSPIUM CHLORIDE [Concomitant]
     Indication: MICTURITION DISORDER
     Dosage: 20 MG, 1X/DAY

REACTIONS (2)
  - CONDITION AGGRAVATED [None]
  - MUSCULAR WEAKNESS [None]
